FAERS Safety Report 7526705-1 (Version None)
Quarter: 2011Q2

REPORT INFORMATION
  Report Type: 
  Country: None (occurrence: None)
  Receive Date: 20110606
  Receipt Date: 20110531
  Transmission Date: 20111010
  Serious: Yes (Hospitalization, Other)
  Sender: FDA-Public Use
  Company Number: US-ELI_LILLY_AND_COMPANY-US200910005610

PATIENT
  Sex: Female
  Weight: 119.73 kg

DRUGS (14)
  1. CYMBALTA [Concomitant]
  2. BYETTA [Suspect]
     Indication: DIABETES MELLITUS
     Dosage: 5 UG, BID
     Route: 058
     Dates: start: 20051001, end: 20080810
  3. PREDNISONE [Concomitant]
  4. MOTRIN [Concomitant]
     Indication: PAIN
  5. TRAZODONE HCL [Concomitant]
     Indication: DEPRESSION
     Dosage: 150 MG, QD
  6. ACTOS [Concomitant]
     Dates: end: 20051001
  7. VYTORIN [Concomitant]
     Indication: BLOOD CHOLESTEROL
     Route: 048
  8. FERROUS SULFATE TAB [Concomitant]
     Indication: MEDICAL DIET
  9. METFORMIN HCL [Concomitant]
     Indication: DIABETES MELLITUS
  10. TRICOR [Concomitant]
     Dosage: 140 MG, QD
     Route: 048
  11. TOPAMAX [Concomitant]
     Indication: DEPRESSION
     Dosage: 200 DF, BID
     Route: 048
  12. BACTRIM [Concomitant]
     Indication: URINARY TRACT INFECTION
  13. PHENAZOPYRIDINE HCL TAB [Concomitant]
     Indication: URINARY TRACT INFECTION
  14. TUMS /00108001/ [Concomitant]
     Indication: DYSPEPSIA

REACTIONS (5)
  - PANCREATITIS ACUTE [None]
  - WEIGHT DECREASED [None]
  - NAUSEA [None]
  - RENAL FAILURE [None]
  - VOMITING [None]
